FAERS Safety Report 18287781 (Version 1)
Quarter: 2020Q3

REPORT INFORMATION
  Report Type: Spontaneous
  Country: IT (occurrence: IT)
  Receive Date: 20200921
  Receipt Date: 20200921
  Transmission Date: 20201103
  Serious: Yes (Hospitalization)
  Sender: FDA-Public Use
  Company Number: IT-AXELLIA-003370

PATIENT
  Age: 79 Year
  Sex: Male

DRUGS (3)
  1. CASPOFUNGIN [Suspect]
     Active Substance: CASPOFUNGIN
     Indication: CANDIDA INFECTION
     Dosage: 70 MG LOADING DOSE, DAY 1; 50 MG Q24H, SUBSEQUENT DAYS
     Dates: start: 2020
  2. ERTAPENEM/ERTAPENEM SODIUM [Concomitant]
     Active Substance: ERTAPENEM
     Indication: MORGANELLA INFECTION
     Dosage: Q24H
     Dates: start: 2020
  3. COLISTIN [Concomitant]
     Active Substance: COLISTIN
     Indication: ACINETOBACTER INFECTION
     Dosage: 2.25 MUI Q12H
     Dates: start: 2020

REACTIONS (2)
  - Treatment failure [Unknown]
  - Condition aggravated [Unknown]
